FAERS Safety Report 9674279 (Version 2)
Quarter: 2013Q4

REPORT INFORMATION
  Report Type: Report from Study
  Country: JP (occurrence: JP)
  Receive Date: 20131107
  Receipt Date: 20131213
  Transmission Date: 20140711
  Serious: Yes (Other)
  Sender: FDA-Public Use
  Company Number: JP-009507513-1311JPN001884

PATIENT
  Age: 63 Year
  Sex: Female

DRUGS (12)
  1. GLACTIV [Suspect]
     Indication: TYPE 1 DIABETES MELLITUS
     Dosage: 50 MG, QD
     Route: 048
     Dates: start: 20120509
  2. HUMALOG [Concomitant]
     Dosage: 90 IU, UNK
     Dates: end: 20120605
  3. HUMALOG [Concomitant]
     Dosage: 84 IU, UNK
     Dates: start: 20120606, end: 20120704
  4. HUMALOG [Concomitant]
     Dosage: 72 IU, UNK
     Dates: start: 20120705, end: 20121104
  5. HUMALOG [Concomitant]
     Dosage: 87 IU, UNK
     Dates: start: 20121105, end: 20130408
  6. HUMALOG [Concomitant]
     Dosage: 84 IU, UNK
     Dates: start: 20130409
  7. LANTUS [Concomitant]
     Dosage: 10 IU, UNK
     Dates: end: 20120605
  8. LANTUS [Concomitant]
     Dosage: 8 IU, UNK
     Dates: start: 20120606, end: 20121104
  9. LANTUS [Concomitant]
     Dosage: 10 IU, UNK
     Dates: start: 20121105
  10. SIGMART [Concomitant]
  11. ITOROL [Concomitant]
  12. PRERAN [Concomitant]

REACTIONS (2)
  - Hypoglycaemia unawareness [Recovered/Resolved]
  - Off label use [Unknown]
